FAERS Safety Report 17479278 (Version 1)
Quarter: 2020Q1

REPORT INFORMATION
  Report Type: Report from Study
  Country: None (occurrence: US)
  Receive Date: 20200228
  Receipt Date: 20200228
  Transmission Date: 20200409
  Serious: Yes (Hospitalization)
  Sender: FDA-Public Use
  Company Number: US-ABBVIE-20P-163-3296530-00

PATIENT
  Sex: Female

DRUGS (1)
  1. RINVOQ [Suspect]
     Active Substance: UPADACITINIB
     Indication: RHEUMATOID ARTHRITIS
     Route: 048
     Dates: start: 20191107

REACTIONS (8)
  - Drug ineffective [Not Recovered/Not Resolved]
  - Pneumonia bacterial [Unknown]
  - Pain [Not Recovered/Not Resolved]
  - Pneumonia viral [Unknown]
  - Asthenia [Unknown]
  - Fatigue [Unknown]
  - Renal failure [Unknown]
  - Loss of consciousness [Unknown]
